FAERS Safety Report 10748943 (Version 3)
Quarter: 2015Q2

REPORT INFORMATION
  Report Type: Report from Study
  Country: US (occurrence: US)
  Receive Date: 20150129
  Receipt Date: 20150626
  Transmission Date: 20150821
  Serious: Yes (Death, Life-Threatening, Hospitalization, Other)
  Sender: FDA-Public Use
  Company Number: US-GILEAD-2015-0134369

PATIENT
  Age: 44 Year
  Sex: Female

DRUGS (18)
  1. PROTONIX [Concomitant]
     Active Substance: PANTOPRAZOLE SODIUM
  2. METOLAZONE. [Concomitant]
     Active Substance: METOLAZONE
  3. REMODULIN [Concomitant]
     Active Substance: TREPROSTINIL
  4. LIDOCAINE. [Concomitant]
     Active Substance: LIDOCAINE
  5. MIRENA [Concomitant]
     Active Substance: LEVONORGESTREL
  6. FERROUS SULFATE [Concomitant]
     Active Substance: FERROUS SULFATE\FERROUS SULFATE, DRIED
  7. ALLEGRA [Concomitant]
     Active Substance: FEXOFENADINE HYDROCHLORIDE
  8. TRAZODONE [Concomitant]
     Active Substance: TRAZODONE HYDROCHLORIDE
  9. MS CONTIN [Concomitant]
     Active Substance: MORPHINE SULFATE
  10. PROMETHAZINE [Concomitant]
     Active Substance: PROMETHAZINE\PROMETHAZINE HYDROCHLORIDE
  11. AMBRISENTAN [Suspect]
     Active Substance: AMBRISENTAN
     Indication: PULMONARY ARTERIAL HYPERTENSION
     Dosage: 10 MG, QD
     Route: 065
     Dates: start: 20100326
  12. ELAVIL [Concomitant]
     Active Substance: AMITRIPTYLINE HYDROCHLORIDE
  13. DEMADEX [Concomitant]
     Active Substance: TORSEMIDE
  14. DRISDOL [Concomitant]
     Active Substance: ERGOCALCIFEROL
  15. POTASSIUM [Concomitant]
     Active Substance: POTASSIUM
  16. ALDACTONE [Concomitant]
     Active Substance: SPIRONOLACTONE
  17. ZOFRAN                             /00955301/ [Concomitant]
     Active Substance: ONDANSETRON HYDROCHLORIDE
  18. ADCIRCA [Concomitant]
     Active Substance: TADALAFIL

REACTIONS (4)
  - Sepsis [Fatal]
  - Pneumonia [Fatal]
  - Renal failure [Unknown]
  - Pulmonary arterial hypertension [Fatal]

NARRATIVE: CASE EVENT DATE: 20150124
